FAERS Safety Report 9009862 (Version 6)
Quarter: 2018Q4

REPORT INFORMATION
  Report Type: Spontaneous
  Country: US (occurrence: US)
  Receive Date: 20130110
  Receipt Date: 20181206
  Transmission Date: 20190205
  Serious: Yes (Hospitalization, Other)
  Sender: FDA-Public Use
  Company Number: US-009507513-1301USA002333

PATIENT
  Sex: Female

DRUGS (4)
  1. CORTICOSTEROIDS (UNSPECIFIED) [Concomitant]
     Active Substance: UNSPECIFIED INGREDIENT
     Indication: PRODUCT USED FOR UNKNOWN INDICATION
     Dosage: UNK
     Route: 065
     Dates: start: 199712, end: 201006
  2. ALENDRONATE SODIUM. [Suspect]
     Active Substance: ALENDRONATE SODIUM
     Indication: OSTEOPOROSIS
     Dosage: 70 MG, UNK
     Route: 048
     Dates: start: 200810, end: 201105
  3. FOSAMAX [Suspect]
     Active Substance: ALENDRONATE SODIUM
     Indication: OSTEOPOROSIS
     Dosage: 70 MG, UNK
     Route: 048
     Dates: start: 20010709, end: 2008
  4. OSCAL D [Concomitant]
     Active Substance: CALCIUM CARBONATE\CHOLECALCIFEROL
     Indication: PRODUCT USED FOR UNKNOWN INDICATION
     Dosage: 500 MG, QD
     Route: 048
     Dates: start: 1984

REACTIONS (18)
  - Foot operation [Unknown]
  - Neuropathy peripheral [Unknown]
  - Arthritis [Unknown]
  - Complication associated with device [Unknown]
  - Arthralgia [Unknown]
  - Femur fracture [Recovered/Resolved]
  - Sleep apnoea syndrome [Unknown]
  - Atrial fibrillation [Unknown]
  - Pain in extremity [Unknown]
  - Gout [Unknown]
  - Transient ischaemic attack [Unknown]
  - Thyroidectomy [Unknown]
  - Spinal fusion surgery [Unknown]
  - Blood cholesterol increased [Unknown]
  - Arthroscopy [Unknown]
  - Osteoporosis [Unknown]
  - Obesity [Unknown]
  - Myocardial infarction [Unknown]

NARRATIVE: CASE EVENT DATE: 200204
